FAERS Safety Report 10759400 (Version 3)
Quarter: 2015Q2

REPORT INFORMATION
  Report Type: Other
  Country: US (occurrence: US)
  Receive Date: 20150203
  Receipt Date: 20150416
  Transmission Date: 20150821
  Serious: Yes (Death, Hospitalization, Other)
  Sender: FDA-Public Use
  Company Number: US-SHIRE-US201500863

PATIENT
  Age: 91 Year
  Sex: Female

DRUGS (15)
  1. AMLODIPINE [Concomitant]
     Active Substance: AMLODIPINE BESYLATE
     Indication: BLOOD PRESSURE ABNORMAL
     Dosage: 5 MG, 1X/DAY:QD
     Route: 048
     Dates: start: 2006, end: 201308
  2. PENTASA [Suspect]
     Active Substance: MESALAMINE
     Indication: COLITIS
     Dosage: 1000 MG (TWO 500 MG CAPSULES), 4X/DAY:QID
     Route: 048
     Dates: start: 20061122, end: 20131001
  3. ASPIRIN                            /00002701/ [Concomitant]
     Active Substance: ASPIRIN
     Indication: ANTICOAGULANT THERAPY
     Dosage: 81 MG, 2X/DAY:BID
     Route: 048
     Dates: start: 2006
  4. LISINOPRIL. [Concomitant]
     Active Substance: LISINOPRIL
     Indication: BLOOD PRESSURE ABNORMAL
     Dosage: 20 MG, 1X/DAY:QD
     Route: 048
     Dates: start: 2006, end: 201308
  5. IRON [Concomitant]
     Active Substance: IRON
     Indication: BLOOD DISORDER
     Dosage: 65 MG, 1X/DAY:QD
     Route: 048
     Dates: start: 2006
  6. CITRUCEL [Concomitant]
     Active Substance: METHYLCELLULOSE (4000 MPA.S)
     Indication: NUTRITIONAL SUPPLEMENTATION
     Dosage: 500 MG, 1X/DAY:QD
     Route: 048
     Dates: start: 2006
  7. CALCIUM [Concomitant]
     Active Substance: CALCIUM
     Indication: NUTRITIONAL SUPPLEMENTATION
     Dosage: 600 MG, 2X/DAY:BID
     Route: 048
     Dates: start: 2006
  8. MULTIVITAMIN                       /07504101/ [Concomitant]
     Active Substance: VITAMINS
     Indication: NUTRITIONAL SUPPLEMENTATION
     Dosage: UNK, 1X/DAY:QD
     Route: 048
     Dates: start: 2006
  9. FISH OIL [Concomitant]
     Active Substance: FISH OIL
     Indication: MACULAR DEGENERATION
     Dosage: 1200 MG, 2X/DAY:BID
     Route: 048
     Dates: start: 2006
  10. LOPRESSOR [Concomitant]
     Active Substance: METOPROLOL TARTRATE
     Indication: BLOOD PRESSURE
     Dosage: 25 MG, 2X/DAY:BID
     Route: 048
     Dates: start: 2006
  11. FLORASTOR [Concomitant]
     Active Substance: SACCHAROMYCES CEREVISIAE
     Indication: SUPPLEMENTATION THERAPY
     Dosage: UNK, UNKNOWN
     Route: 065
     Dates: start: 2006
  12. PRESERVISION [Concomitant]
     Active Substance: MINERALS\VITAMINS
     Indication: SUPPLEMENTATION THERAPY
  13. VITAMIN D                          /00107901/ [Concomitant]
     Active Substance: ERGOCALCIFEROL
     Indication: EYE DISORDER
     Dosage: 1000 IU, 2X/DAY:BID
     Route: 048
     Dates: start: 2006
  14. PENTASA [Suspect]
     Active Substance: MESALAMINE
     Dosage: 1000 MG (TWO 500 MG CAPSULES), 3X/DAY:TID
     Route: 048
     Dates: start: 20131018, end: 20150123
  15. PRESERVISION [Concomitant]
     Active Substance: MINERALS\VITAMINS
     Indication: EYE DISORDER
     Dosage: UNK, 2X/DAY:BID
     Route: 048
     Dates: start: 2006

REACTIONS (7)
  - Malaise [Fatal]
  - Sepsis [Fatal]
  - Cardiac failure [Fatal]
  - Diarrhoea [Recovered/Resolved]
  - Respiratory disorder [Fatal]
  - Atrial fibrillation [Unknown]
  - Urinary tract infection [Fatal]

NARRATIVE: CASE EVENT DATE: 2012
